FAERS Safety Report 6609722-5 (Version None)
Quarter: 2010Q1

REPORT INFORMATION
  Report Type: 
  Country: None (occurrence: None)
  Receive Date: 20100302
  Receipt Date: 20100223
  Transmission Date: 20100710
  Serious: Yes (Hospitalization)
  Sender: FDA-Public Use
  Company Number: CH-SANOFI-AVENTIS-2010SA010556

PATIENT
  Sex: Male

DRUGS (2)
  1. LANTUS [Suspect]
     Route: 058
     Dates: start: 20100208, end: 20100208
  2. NOVORAPID [Suspect]
     Route: 058
     Dates: start: 20100208, end: 20100208

REACTIONS (3)
  - HYPOGLYCAEMIA [None]
  - NERVOUS SYSTEM DISORDER [None]
  - SUICIDE ATTEMPT [None]
